FAERS Safety Report 8562997 (Version 2)
Quarter: 2014Q1

REPORT INFORMATION
  Report Type: Spontaneous
  Country: US (occurrence: US)
  Receive Date: 20120515
  Receipt Date: 20140128
  Transmission Date: 20141002
  Serious: Yes (Other)
  Sender: FDA-Public Use
  Company Number: US-BAYER-2012-046300

PATIENT
  Age: 17 Year
  Sex: Female

DRUGS (8)
  1. YASMIN [Suspect]
  2. YAZ [Suspect]
  3. MYLANTA [CALCIUM CARBONATE] [Concomitant]
  4. LEVOTHYROXINE [Concomitant]
  5. PREVACID [Concomitant]
  6. BELLATAL [Concomitant]
  7. LORATADINE [Concomitant]
  8. EPIPEN [Concomitant]

REACTIONS (10)
  - Pulmonary embolism [None]
  - Injury [None]
  - Biliary dyskinesia [None]
  - Cholecystitis chronic [None]
  - Pain [None]
  - Anhedonia [None]
  - Quality of life decreased [None]
  - Emotional distress [None]
  - Fear [None]
  - Anxiety [None]
